FAERS Safety Report 7120133-9 (Version None)
Quarter: 2010Q4

REPORT INFORMATION
  Report Type: 
  Country: None (occurrence: None)
  Receive Date: 20101123
  Receipt Date: 20101118
  Transmission Date: 20110411
  Serious: Yes (Death, Hospitalization)
  Sender: FDA-Public Use
  Company Number: GB-ABBOTT-10P-167-0620637-00

PATIENT
  Sex: Female
  Weight: 53 kg

DRUGS (9)
  1. HUMIRA [Suspect]
     Indication: RHEUMATOID ARTHRITIS
     Route: 058
     Dates: start: 20041015, end: 20051015
  2. PREDNISOLONE [Concomitant]
     Indication: PRODUCT USED FOR UNKNOWN INDICATION
     Dosage: BASELINE MEDICATION @ 08-JAN-2004
     Dates: start: 20040108
  3. ATORVASTATIN [Concomitant]
     Indication: PRODUCT USED FOR UNKNOWN INDICATION
     Dosage: BASELINE MEDICATION @ 08-JAN-2004
     Dates: start: 20040108
  4. FERROUS SULFATE TAB [Concomitant]
     Indication: PRODUCT USED FOR UNKNOWN INDICATION
     Dosage: BASELINE MEDICATION @ 08-JAN-2004
     Dates: start: 20040108
  5. FOSAMAX [Concomitant]
     Indication: PRODUCT USED FOR UNKNOWN INDICATION
     Dosage: BASELINE MEDICATION @ 08-JAN-2004
     Dates: start: 20040108
  6. NITROGLYCERIN [Concomitant]
     Indication: PRODUCT USED FOR UNKNOWN INDICATION
     Dosage: BASELINE MEDICATION @ 08-JAN-2004
     Dates: start: 20040108
  7. LANSOPRAZOLE [Concomitant]
     Indication: PRODUCT USED FOR UNKNOWN INDICATION
     Dosage: BASELINE MEDICATION @ 08-JAN-2004
     Dates: start: 20040108
  8. LOSARTAN [Concomitant]
     Indication: PRODUCT USED FOR UNKNOWN INDICATION
     Dosage: BASELINE MEDICATION @ 08-JAN-2004
     Dates: start: 20040108
  9. SOLPADOL [Concomitant]
     Indication: PRODUCT USED FOR UNKNOWN INDICATION
     Dates: start: 20040108

REACTIONS (3)
  - ABDOMINAL PAIN [None]
  - INTESTINAL INFARCTION [None]
  - RENAL MASS [None]
